FAERS Safety Report 14977785 (Version 1)
Quarter: 2018Q2

REPORT INFORMATION
  Report Type: Spontaneous
  Country: US (occurrence: US)
  Receive Date: 20180515
  Receipt Date: 20180515
  Transmission Date: 20180711
  Serious: Yes (Other)
  Sender: FDA-Public Use
  Company Number: None

PATIENT
  Age: 51 Year
  Sex: Female
  Weight: 118.35 kg

DRUGS (14)
  1. LISINOPRIL. [Concomitant]
     Active Substance: LISINOPRIL
  2. NAPROXEN. [Concomitant]
     Active Substance: NAPROXEN
  3. OMEGA 3 [Concomitant]
     Active Substance: OMEGA-3 FATTY ACIDS
  4. TECFIDERA [Suspect]
     Active Substance: DIMETHYL FUMARATE
     Indication: MULTIPLE SCLEROSIS
     Dosage: ?          QUANTITY:1 CAPSULE(S);?
     Route: 048
     Dates: start: 20180419, end: 20180502
  5. ASPIRIN LOW DOSE 81 MG [Concomitant]
  6. AMANTADINE. [Concomitant]
     Active Substance: AMANTADINE HYDROCHLORIDE
  7. ZINC. [Concomitant]
     Active Substance: ZINC
  8. PROVIGIL [Concomitant]
     Active Substance: MODAFINIL
  9. SERTRALINE [Concomitant]
     Active Substance: SERTRALINE HYDROCHLORIDE
  10. VITAMIN C [Concomitant]
     Active Substance: ASCORBIC ACID
  11. CRANBERRY. [Concomitant]
     Active Substance: CRANBERRY
  12. ATORVASTATIN [Concomitant]
     Active Substance: ATORVASTATIN
  13. VITAMIN D3 [Concomitant]
     Active Substance: CHOLECALCIFEROL
  14. MULTIVITAMIN [Concomitant]
     Active Substance: VITAMINS

REACTIONS (7)
  - Multiple sclerosis [None]
  - Balance disorder [None]
  - Nausea [None]
  - Haematemesis [None]
  - Dyspnoea [None]
  - Dizziness [None]
  - Muscle spasticity [None]

NARRATIVE: CASE EVENT DATE: 20180502
